FAERS Safety Report 5804253-4 (Version None)
Quarter: 2008Q3

REPORT INFORMATION
  Report Type: 
  Country: None (occurrence: None)
  Receive Date: 20080709
  Receipt Date: 20080703
  Transmission Date: 20090109
  Serious: Yes (Hospitalization, Other)
  Sender: FDA-Public Use
  Company Number: US-ASTRAZENECA-2008UW07754

PATIENT
  Age: 10523 Day
  Sex: Female
  Weight: 114.5 kg

DRUGS (3)
  1. SEROQUEL [Suspect]
     Indication: BIPOLAR DISORDER
     Dosage: 25 MG, 100 MG
     Route: 048
     Dates: start: 20021115
  2. GEODON [Concomitant]
     Dates: start: 20040101, end: 20080101
  3. TOPAMAX [Concomitant]

REACTIONS (5)
  - ARTERIAL GRAFT [None]
  - BLOOD CHOLESTEROL INCREASED [None]
  - CATHETERISATION CARDIAC [None]
  - DIABETES MELLITUS [None]
  - STAPHYLOCOCCAL INFECTION [None]
